FAERS Safety Report 11849974 (Version 1)
Quarter: 2015Q4

REPORT INFORMATION
  Report Type: Spontaneous
  Country: CA (occurrence: CA)
  Receive Date: 20151218
  Receipt Date: 20151218
  Transmission Date: 20160305
  Serious: Yes (Other)
  Sender: FDA-Public Use
  Company Number: CA-TEVA-618938ACC

PATIENT
  Age: 81 Year
  Sex: Male
  Weight: 91.25 kg

DRUGS (1)
  1. RATIO-METFORMIN [Suspect]
     Active Substance: METFORMIN HYDROCHLORIDE
     Indication: PRODUCT USED FOR UNKNOWN INDICATION
     Route: 065

REACTIONS (3)
  - Rash generalised [Recovered/Resolved]
  - Drug eruption [Recovered/Resolved]
  - Biopsy skin abnormal [Recovered/Resolved]
